FAERS Safety Report 9520358 (Version 1)
Quarter: 2013Q3

REPORT INFORMATION
  Report Type: Spontaneous
  Country: US (occurrence: US)
  Receive Date: 20130912
  Receipt Date: 20130912
  Transmission Date: 20140515
  Serious: Yes (Other)
  Sender: FDA-Public Use
  Company Number: US-ABBOTT-13P-163-1143369-00

PATIENT
  Age: 38 Year
  Sex: Female
  Weight: 108.96 kg

DRUGS (18)
  1. HUMIRA [Suspect]
     Indication: RHEUMATOID ARTHRITIS
     Dates: start: 2009
  2. HUMIRA [Suspect]
     Indication: CROHN^S DISEASE
     Dates: end: 20130721
  3. ACYCLOVIR [Concomitant]
     Indication: HERPES VIRUS INFECTION
  4. LIDOCAINE/PRILOCAINE [Concomitant]
     Indication: PAIN
  5. LIDOCAINE/PRILOCAINE [Concomitant]
     Indication: HERPES VIRUS INFECTION
  6. OMEPRAZOLE [Concomitant]
     Indication: GASTROOESOPHAGEAL REFLUX DISEASE
  7. FOLIC ACID [Concomitant]
     Indication: PRODUCT USED FOR UNKNOWN INDICATION
     Dosage: TAKEN WITH METHOTREXATE
  8. METHOTREXATE [Concomitant]
     Indication: RHEUMATOID ARTHRITIS
  9. METHOTREXATE [Concomitant]
     Indication: CROHN^S DISEASE
  10. PREDNISONE [Concomitant]
     Indication: RHEUMATOID ARTHRITIS
  11. PREDNISONE [Concomitant]
     Indication: CROHN^S DISEASE
  12. PRISTIQ [Concomitant]
     Indication: ANXIETY
  13. PRISTIQ [Concomitant]
     Indication: DEPRESSION
  14. HYDROCODONE [Concomitant]
     Indication: BACK PAIN
  15. HYDROCODONE [Concomitant]
     Indication: ARTHRALGIA
  16. ALBUTEROL [Concomitant]
     Indication: ASTHMA
  17. PATANOL [Concomitant]
     Indication: EYE ALLERGY
     Dosage: AS NEEDED
  18. TRAZODONE [Concomitant]
     Indication: INSOMNIA

REACTIONS (7)
  - Disability [Not Recovered/Not Resolved]
  - Tuberculin test positive [Not Recovered/Not Resolved]
  - Genital herpes [Recovered/Resolved]
  - Rheumatoid arthritis [Not Recovered/Not Resolved]
  - Crohn^s disease [Not Recovered/Not Resolved]
  - Attention deficit/hyperactivity disorder [Not Recovered/Not Resolved]
  - Granuloma [Not Recovered/Not Resolved]
